FAERS Safety Report 9735729 (Version 2)
Quarter: 2013Q4

REPORT INFORMATION
  Report Type: Spontaneous
  Country: US (occurrence: None)
  Receive Date: 20131204
  Receipt Date: 20131224
  Transmission Date: 20140711
  Serious: Yes (Other)
  Sender: FDA-Public Use
  Company Number: KAD201311-001564

PATIENT
  Age: 61 Year
  Sex: Male

DRUGS (4)
  1. RIBAVIRIN [Suspect]
     Indication: HEPATITIS C
  2. RIBAVIRIN [Suspect]
     Indication: HEPATIC CIRRHOSIS
  3. PEGINTERFERON [Suspect]
     Indication: HEPATITIS C
  4. PEGINTERFERON [Suspect]
     Indication: HEPATIC CIRRHOSIS

REACTIONS (3)
  - Gastroenteritis eosinophilic [None]
  - Decreased appetite [None]
  - Erosive oesophagitis [None]
